FAERS Safety Report 5440740-9 (Version None)
Quarter: 2007Q3

REPORT INFORMATION
  Report Type: 
  Country: None (occurrence: None)
  Receive Date: 20070831
  Receipt Date: 20070823
  Transmission Date: 20080115
  Serious: Yes (Hospitalization)
  Sender: FDA-Public Use
  Company Number: SE-GENENTECH-246052

PATIENT
  Sex: Female

DRUGS (1)
  1. RITUXAN [Suspect]
     Indication: LYMPHOMA
     Route: 042

REACTIONS (4)
  - CEREBRAL DISORDER [None]
  - DYSPHAGIA [None]
  - PYREXIA [None]
  - URINARY RETENTION [None]
